FAERS Safety Report 15527075 (Version 1)
Quarter: 2018Q4

REPORT INFORMATION
  Report Type: Spontaneous
  Country: FR (occurrence: FR)
  Receive Date: 20181018
  Receipt Date: 20181018
  Transmission Date: 20190205
  Serious: Yes (Hospitalization)
  Sender: FDA-Public Use
  Company Number: PHHY2018FR128840

PATIENT
  Age: 20 Year
  Sex: Female
  Weight: 55 kg

DRUGS (2)
  1. AMOXICILLIN AND CLAVULA. POTASSIUM [Suspect]
     Active Substance: AMOXICILLIN\CLAVULANATE POTASSIUM
     Indication: RICKETTSIOSIS
     Dosage: 3 G, QD
     Route: 048
     Dates: start: 20180920, end: 20180924
  2. DOXYCYCLINE SANDOZ [Suspect]
     Active Substance: DOXYCYCLINE
     Indication: RICKETTSIOSIS
     Dosage: 200 MG, QD
     Route: 048
     Dates: start: 20180920, end: 20180925

REACTIONS (1)
  - Hepatocellular injury [Recovering/Resolving]

NARRATIVE: CASE EVENT DATE: 20180925
